FAERS Safety Report 11444419 (Version 1)
Quarter: 2015Q3

REPORT INFORMATION
  Report Type: Spontaneous
  Country: RU (occurrence: RU)
  Receive Date: 20150902
  Receipt Date: 20150902
  Transmission Date: 20151125
  Serious: Yes (Death)
  Sender: FDA-Public Use
  Company Number: RU-ASTRAZENECA-2015SE83656

PATIENT
  Age: 78 Year
  Sex: Male
  Weight: 62 kg

DRUGS (5)
  1. ATORVASTATIN [Concomitant]
     Active Substance: ATORVASTATIN
     Indication: CORONARY ARTERY DISEASE
     Route: 048
     Dates: start: 20150715
  2. OMEZ [Concomitant]
     Active Substance: OMEPRAZOLE
     Indication: GASTRIC ULCER
     Route: 048
     Dates: start: 20150715
  3. CARDIOMAGNYL [Suspect]
     Active Substance: ASPIRIN\MAGNESIUM HYDROXIDE
     Indication: MYOCARDIAL INFARCTION
     Route: 048
     Dates: start: 20150715, end: 20150725
  4. BRILINTA [Suspect]
     Active Substance: TICAGRELOR
     Indication: MYOCARDIAL INFARCTION
     Route: 048
     Dates: start: 20150715
  5. CLEXANE [Suspect]
     Active Substance: ENOXAPARIN SODIUM
     Indication: MYOCARDIAL INFARCTION
     Route: 058
     Dates: start: 20150725

REACTIONS (3)
  - Shock haemorrhagic [Fatal]
  - Gastric ulcer haemorrhage [Fatal]
  - Gastric haemorrhage [Fatal]

NARRATIVE: CASE EVENT DATE: 20150727
